FAERS Safety Report 19299788 (Version 2)
Quarter: 2024Q4

REPORT INFORMATION
  Report Type: Spontaneous
  Country: ES (occurrence: ES)
  Receive Date: 20210525
  Receipt Date: 20241204
  Transmission Date: 20250115
  Serious: Yes (Life-Threatening, Hospitalization)
  Sender: AUROBINDO
  Company Number: ES-ACTAVIS-2011-10410

PATIENT
  Age: 81 Year
  Sex: Female

DRUGS (4)
  1. AZITHROMYCIN [Suspect]
     Active Substance: AZITHROMYCIN
     Indication: Influenza
     Dosage: 500 MILLIGRAM, ONCE A DAY
     Route: 065
     Dates: start: 20240901, end: 20240904
  2. AZITHROMYCIN [Suspect]
     Active Substance: AZITHROMYCIN
     Indication: Tracheobronchitis
  3. CHLORTHALIDONE [Concomitant]
     Active Substance: CHLORTHALIDONE
     Indication: Hypertension
     Dosage: UNK
     Route: 065
  4. SPIRONOLACTONE [Concomitant]
     Active Substance: SPIRONOLACTONE
     Indication: Hypertension
     Dosage: UNK
     Route: 065

REACTIONS (9)
  - Decreased appetite [Unknown]
  - Suicidal ideation [Recovered/Resolved]
  - Catatonia [Recovered/Resolved]
  - Insomnia [Unknown]
  - Depressed mood [Unknown]
  - Delusion [Unknown]
  - Psychotic disorder [Unknown]
  - Catastrophic reaction [Recovered/Resolved]
  - Major depression [Recovered/Resolved]

NARRATIVE: CASE EVENT DATE: 20240903
